FAERS Safety Report 4661788-8 (Version None)
Quarter: 2005Q2

REPORT INFORMATION
  Report Type: 
  Country: None (occurrence: None)
  Receive Date: 20050513
  Receipt Date: 20050429
  Transmission Date: 20051028
  Serious: Yes (Death, Hospitalization)
  Sender: FDA-Public Use
  Company Number: 2005CG00845

PATIENT
  Age: 71 Year
  Sex: Male
  Weight: 100 kg

DRUGS (4)
  1. KENZEN [Suspect]
     Route: 048
     Dates: end: 20050403
  2. OXEOL [Suspect]
     Route: 048
     Dates: end: 20050403
  3. CORDARONE [Suspect]
     Indication: VENTRICULAR EXTRASYSTOLES
     Route: 048
     Dates: end: 20050330
  4. FORADIL [Suspect]
     Route: 055
     Dates: end: 20050403

REACTIONS (5)
  - CHEST DISCOMFORT [None]
  - CHEST X-RAY ABNORMAL [None]
  - DYSPNOEA EXERTIONAL [None]
  - INTERSTITIAL LUNG DISEASE [None]
  - RESPIRATORY FAILURE [None]
